FAERS Safety Report 9146951 (Version 1)
Quarter: 2013Q1

REPORT INFORMATION
  Report Type: Spontaneous
  Country: SE (occurrence: SE)
  Receive Date: 20130307
  Receipt Date: 20130307
  Transmission Date: 20140127
  Serious: Yes (Hospitalization)
  Sender: FDA-Public Use
  Company Number: SE-BRISTOL-MYERS SQUIBB COMPANY-17422676

PATIENT
  Age: 55 Year
  Sex: Male

DRUGS (1)
  1. HYDREA [Suspect]
     Dosage: HYDREA DOSE DOUBLED ON 12NOV2012
     Dates: end: 20121128

REACTIONS (3)
  - Pyrexia [Not Recovered/Not Resolved]
  - Transaminases increased [Unknown]
  - Blood alkaline phosphatase increased [Not Recovered/Not Resolved]
